FAERS Safety Report 5253010-9 (Version None)
Quarter: 2007Q1

REPORT INFORMATION
  Report Type: 
  Country: None (occurrence: None)
  Receive Date: 20070301
  Receipt Date: 20070219
  Transmission Date: 20070707
  Serious: Yes (Hospitalization, Other)
  Sender: FDA-Public Use
  Company Number: FRWYE720219FEB07

PATIENT
  Sex: Male
  Weight: 13.2 kg

DRUGS (4)
  1. ADVIL [Suspect]
     Dosage: UNKNOWN
     Route: 048
     Dates: start: 20070117, end: 20070117
  2. JOSACINE [Suspect]
     Indication: LYMPHADENOPATHY
     Dosage: UNKNOWN
     Dates: start: 20070116
  3. JOSACINE [Suspect]
     Indication: TONSILLITIS
  4. DOLIPRANE [Suspect]
     Dosage: UNKNOWN
     Dates: start: 20070117, end: 20070117

REACTIONS (4)
  - ABSCESS NECK [None]
  - CONDITION AGGRAVATED [None]
  - HAEMOGLOBIN DECREASED [None]
  - LYMPHADENOPATHY [None]
